FAERS Safety Report 8380814-6 (Version None)
Quarter: 2012Q2

REPORT INFORMATION
  Report Type: 
  Country: None (occurrence: None)
  Receive Date: 20120523
  Receipt Date: 20120518
  Transmission Date: 20120825
  Serious: Yes (Other)
  Sender: FDA-Public Use
  Company Number: US-PFIZER INC-2012121290

PATIENT
  Sex: Female
  Weight: 81.633 kg

DRUGS (4)
  1. SERTRALINE [Concomitant]
     Indication: DEPRESSION
     Dosage: 75 MG, DAILY
  2. DETROL [Suspect]
     Dosage: 4 MG, DAILY
     Dates: end: 20120501
  3. TOLTERODINE TARTRATE [Suspect]
     Dosage: 10 MG, DAILY
     Dates: start: 20120501, end: 20120501
  4. SERTRALINE [Concomitant]
     Indication: ANXIETY

REACTIONS (7)
  - DRY MOUTH [None]
  - DRY THROAT [None]
  - VOMITING [None]
  - NASAL DISCOMFORT [None]
  - HYPERTENSION [None]
  - SNEEZING [None]
  - COUGH [None]
